FAERS Safety Report 10125329 (Version 1)
Quarter: 2014Q2

REPORT INFORMATION
  Report Type: Spontaneous
  Country: US (occurrence: US)
  Receive Date: 20140425
  Receipt Date: 20140425
  Transmission Date: 20141212
  Serious: Yes (Other)
  Sender: FDA-Public Use
  Company Number: US-PURDUE-USA-2014-0113109

PATIENT
  Sex: Male

DRUGS (1)
  1. OXYCODONE HYDROCHLORIDE (SIMILAR TO NDA 22-272) [Suspect]
     Indication: PRODUCT USED FOR UNKNOWN INDICATION

REACTIONS (7)
  - Drug dependence [Unknown]
  - Homicide [Unknown]
  - Aggression [Unknown]
  - Ligament sprain [Unknown]
  - Road traffic accident [Unknown]
  - Screaming [Unknown]
  - Impulsive behaviour [Unknown]
